FAERS Safety Report 8739344 (Version 2)
Quarter: 2012Q4

REPORT INFORMATION
  Report Type: 
  Country: GB (occurrence: GB)
  Receive Date: 20120828
  Receipt Date: 20120920
  Transmission Date: 20130627
  Serious: Yes (Life-Threatening, Hospitalization)
  Sender: FDA-Public Use
  Company Number: GB-JNJFOC-20120810247

PATIENT
  Age: 82 Year
  Sex: Female
  Weight: 60 kg

DRUGS (9)
  1. IBUPROFEN [Suspect]
     Indication: TOOTHACHE
     Dosage: 400mg. 3 times in 1 day
     Route: 048
     Dates: start: 20120701, end: 20120807
  2. ADCAL-D3 [Concomitant]
     Route: 065
  3. CLOMETHIAZOLE [Concomitant]
     Route: 065
  4. RISEDRONATE [Concomitant]
     Route: 065
  5. CALCICHEW D3 [Concomitant]
     Route: 065
  6. CORSODYL [Concomitant]
  7. DOCUSATE [Concomitant]
  8. LACTULOSE [Concomitant]
  9. OMEPRAZOLE [Concomitant]

REACTIONS (6)
  - Small intestinal haemorrhage [Recovering/Resolving]
  - Duodenal ulcer [Not Recovered/Not Resolved]
  - Gastrointestinal haemorrhage [Unknown]
  - Haematemesis [Unknown]
  - Melaena [Unknown]
  - Syncope [Unknown]
